FAERS Safety Report 15475720 (Version 1)
Quarter: 2018Q4

REPORT INFORMATION
  Report Type: Spontaneous
  Country: AU (occurrence: AU)
  Receive Date: 20181008
  Receipt Date: 20181008
  Transmission Date: 20190205
  Serious: Yes (Other)
  Sender: FDA-Public Use
  Company Number: AU-BAXTER-2018BAX023810

PATIENT
  Age: 12 Year
  Sex: Female

DRUGS (5)
  1. BAXTER 0.9% SODIUM CHLORIDE 2.25G_250ML INJECTION BP BAG AHB1322 [Suspect]
     Active Substance: SODIUM CHLORIDE
     Indication: MEDICATION DILUTION
     Dosage: NACL 0.9% BAG COMPOUNDED WITH IRINOTECAN 72MG
     Route: 042
     Dates: start: 20180716, end: 20180719
  2. IRINOTECAN [Suspect]
     Active Substance: IRINOTECAN
     Indication: EWING^S SARCOMA RECURRENT
     Dosage: IRINOTECAN COMPOUNDED WITH NACL 0.9% BAG
     Route: 042
     Dates: start: 20180716, end: 20180719
  3. IRINOTECAN [Suspect]
     Active Substance: IRINOTECAN
     Dosage: IRINOTECAN COMPOUNDED WITH NACL 0.9% BAG, DOSE REINTRODUCED
     Route: 042
  4. TEMOZOLOMIDE. [Suspect]
     Active Substance: TEMOZOLOMIDE
     Indication: EWING^S SARCOMA RECURRENT
     Route: 048
     Dates: start: 20180716, end: 20180719
  5. BAXTER 0.9% SODIUM CHLORIDE 2.25G_250ML INJECTION BP BAG AHB1322 [Suspect]
     Active Substance: SODIUM CHLORIDE
     Dosage: NACL 0.9% BAG COMPOUNDED WITH IRINOTECAN, DOSE REINTRODUCED
     Route: 042

REACTIONS (2)
  - Throat tightness [Recovered/Resolved]
  - Rash [Recovered/Resolved]

NARRATIVE: CASE EVENT DATE: 201807
